FAERS Safety Report 5812967-5 (Version None)
Quarter: 2008Q3

REPORT INFORMATION
  Report Type: 
  Country: None (occurrence: None)
  Receive Date: 20080717
  Receipt Date: 20070828
  Transmission Date: 20090109
  Serious: No
  Sender: FDA-Public Use
  Company Number: A0676604A

PATIENT
  Age: 42 Year
  Sex: Female

DRUGS (2)
  1. NICORETTE [Suspect]
  2. COMMIT [Suspect]

REACTIONS (7)
  - COUGH [None]
  - DRY MOUTH [None]
  - HEADACHE [None]
  - PAIN IN JAW [None]
  - PHARMACEUTICAL PRODUCT COMPLAINT [None]
  - PHARYNGEAL DISORDER [None]
  - THROAT IRRITATION [None]
